FAERS Safety Report 21597773 (Version 1)
Quarter: 2022Q4

REPORT INFORMATION
  Report Type: Spontaneous
  Country: US (occurrence: None)
  Receive Date: 20221114
  Receipt Date: 20221114
  Transmission Date: 20230112
  Serious: No
  Sender: FDA-Public Use
  Company Number: None

PATIENT
  Age: 51 Year
  Sex: Female
  Weight: 75.4 kg

DRUGS (10)
  1. OTEZLA [Suspect]
     Active Substance: APREMILAST
     Indication: Psoriasis
     Dosage: FREQUENCY : TWICE A DAY;?
     Route: 048
     Dates: start: 20220629
  2. valerian tea [Concomitant]
  3. novolog 60-80 units daily [Concomitant]
  4. hydrochlorothiazide 25 mG as needed [Concomitant]
  5. nitrofurantoin 100 mG as needed [Concomitant]
  6. flonase 2 sprays daily as needed [Concomitant]
  7. fluocinonide 0.05% solution as needed [Concomitant]
  8. albuterol inhaler as needed [Concomitant]
  9. etodolac 400 mG as needed [Concomitant]
  10. ibuprofen 600 mg as needed [Concomitant]

REACTIONS (1)
  - Bone pain [None]

NARRATIVE: CASE EVENT DATE: 20220715
